FAERS Safety Report 8848646 (Version 1)
Quarter: 2012Q4

REPORT INFORMATION
  Report Type: 
  Country: US (occurrence: US)
  Receive Date: 20121018
  Receipt Date: 20121018
  Transmission Date: 20130627
  Serious: Yes (Other)
  Sender: FDA-Public Use
  Company Number: US-ROCHE-GNE094232

PATIENT
  Age: 12 Year
  Sex: Male
  Weight: 31.8 kg

DRUGS (5)
  1. NUTROPIN AQ [Suspect]
     Indication: FAILURE TO THRIVE
     Route: 058
  2. NUTROPIN AQ [Suspect]
     Indication: GROWTH HORMONE DEFICIENCY
  3. NUTROPIN AQ [Suspect]
     Indication: BODY HEIGHT BELOW NORMAL
  4. RITALIN-SR [Concomitant]
  5. PREDNISONE [Concomitant]

REACTIONS (5)
  - Anaemia haemolytic autoimmune [Not Recovered/Not Resolved]
  - Viral infection [Unknown]
  - Headache [Unknown]
  - Vomiting [Unknown]
  - Nausea [Unknown]
